FAERS Safety Report 7024478-2 (Version None)
Quarter: 2010Q4

REPORT INFORMATION
  Report Type: 
  Country: None (occurrence: None)
  Receive Date: 20101001
  Receipt Date: 20100924
  Transmission Date: 20110411
  Serious: Yes (Hospitalization)
  Sender: FDA-Public Use
  Company Number: A0812437A

PATIENT
  Age: 52 Year
  Sex: Male
  Weight: 105.5 kg

DRUGS (5)
  1. AVANDIA [Suspect]
     Dosage: 4MG TWICE PER DAY
     Route: 048
     Dates: start: 20020916, end: 20031001
  2. LIPITOR [Concomitant]
  3. LISINOPRIL [Concomitant]
  4. COMBIVENT [Concomitant]
  5. NPH INSULIN [Concomitant]

REACTIONS (4)
  - ANAEMIA [None]
  - MYOCARDIAL INFARCTION [None]
  - RENAL DISORDER [None]
  - THROMBOLYSIS [None]
